FAERS Safety Report 15782788 (Version 3)
Quarter: 2019Q3

REPORT INFORMATION
  Report Type: Spontaneous
  Country: JP (occurrence: JP)
  Receive Date: 20190102
  Receipt Date: 20190723
  Transmission Date: 20191004
  Serious: Yes (Hospitalization)
  Sender: FDA-Public Use
  Company Number: JP-PFIZER INC-2018533336

PATIENT
  Age: 82 Year
  Sex: Male
  Weight: 51.3 kg

DRUGS (3)
  1. ZYVOX [Suspect]
     Active Substance: LINEZOLID
     Indication: POST PROCEDURAL INFECTION
     Dosage: 600 MG, 2X/DAY
     Route: 041
     Dates: start: 20180813, end: 20180827
  2. CUBICIN [Suspect]
     Active Substance: DAPTOMYCIN
     Indication: POST PROCEDURAL INFECTION
     Dosage: (350) UNK, 1X/DAY
     Route: 041
     Dates: start: 20181101, end: 20181109
  3. ZYVOX [Suspect]
     Active Substance: LINEZOLID
     Dosage: 600 MG, 2X/DAY
     Route: 041
     Dates: start: 20181019, end: 20181031

REACTIONS (11)
  - Neutrophil count increased [Unknown]
  - Blood chloride increased [Recovered/Resolved]
  - Eosinophil count decreased [Recovered/Resolved]
  - Blood albumin decreased [Not Recovered/Not Resolved]
  - Blood potassium decreased [Recovered/Resolved]
  - Lymphocyte count decreased [Recovered/Resolved]
  - Blood urea increased [Not Recovered/Not Resolved]
  - Blood glucose increased [Unknown]
  - Interstitial lung disease [Recovered/Resolved]
  - Aspartate aminotransferase decreased [Recovered/Resolved]
  - Blood pressure increased [Recovered/Resolved]

NARRATIVE: CASE EVENT DATE: 20181025
